FAERS Safety Report 4355066-4 (Version None)
Quarter: 2004Q2

REPORT INFORMATION
  Report Type: 
  Country: None (occurrence: None)
  Receive Date: 20040504
  Receipt Date: 20040422
  Transmission Date: 20050107
  Serious: Yes (Death, Hospitalization)
  Sender: FDA-Public Use
  Company Number: 163-20785-04020609

PATIENT
  Age: 76 Year
  Sex: Male
  Weight: 74.3899 kg

DRUGS (8)
  1. THALOMID [Suspect]
     Indication: HEPATIC NEOPLASM MALIGNANT NON-RESECTABLE
     Dosage: 300 MG, DAILY, ORAL
     Route: 048
     Dates: start: 20031009, end: 20040219
  2. EPIRUBICIN [Suspect]
     Indication: HEPATIC NEOPLASM MALIGNANT NON-RESECTABLE
     Dosage: 20 MG/M2, WEEKLY, INTRAVENOUS
     Route: 042
     Dates: start: 20031009, end: 20040212
  3. WARFARIN SODIUM [Concomitant]
  4. ATENOLOL [Concomitant]
  5. LASIX [Concomitant]
  6. NORVASC [Concomitant]
  7. COLACE (DOCUSATE SODIUM) [Concomitant]
  8. MYCELEX [Concomitant]

REACTIONS (4)
  - BRONCHIECTASIS [None]
  - MYOCARDIAL INFARCTION [None]
  - PNEUMONITIS [None]
  - RESPIRATORY ALKALOSIS [None]
